FAERS Safety Report 8859646 (Version 1)
Quarter: 2012Q4

REPORT INFORMATION
  Report Type: 
  Country: US (occurrence: US)
  Receive Date: 20121025
  Receipt Date: 20121025
  Transmission Date: 20130627
  Serious: Yes (Hospitalization)
  Sender: FDA-Public Use
  Company Number: US-SANOFI-AVENTIS-2012SA075912

PATIENT
  Age: 59 Year
  Sex: Male

DRUGS (5)
  1. LANTUS SOLOSTAR [Suspect]
     Indication: DIABETES MELLITUS
     Dosage: Dose of 20-30 units BID
     Route: 058
     Dates: start: 2001
  2. LANTUS SOLOSTAR [Suspect]
     Indication: DIABETES MELLITUS
     Dosage: Dose of 20-30 units BID
     Route: 058
     Dates: start: 2001
  3. SOLOSTAR [Suspect]
     Indication: DIABETES MELLITUS
     Dates: start: 2001
  4. SOLOSTAR [Suspect]
     Indication: DIABETES MELLITUS
     Dates: start: 2001
  5. UNSPECIFIED INGREDIENT [Suspect]
     Route: 065
     Dates: start: 201206

REACTIONS (8)
  - Renal failure [Unknown]
  - Delirium [Unknown]
  - Hypoaesthesia [Unknown]
  - Muscle atrophy [Unknown]
  - Restless legs syndrome [Unknown]
  - Condition aggravated [Unknown]
  - Injection site pain [Not Recovered/Not Resolved]
  - Wrong technique in drug usage process [Not Recovered/Not Resolved]
